FAERS Safety Report 16919429 (Version 1)
Quarter: 2019Q4

REPORT INFORMATION
  Report Type: Spontaneous
  Country: US (occurrence: US)
  Receive Date: 20191014
  Receipt Date: 20191014
  Transmission Date: 20200122
  Serious: No
  Sender: FDA-Public Use
  Company Number: None

PATIENT
  Age: 90 Year
  Sex: Female
  Weight: 74.25 kg

DRUGS (12)
  1. ATENOLOL. [Concomitant]
     Active Substance: ATENOLOL
  2. PROVENTIL HFA [Concomitant]
     Active Substance: ALBUTEROL SULFATE
  3. XARELTO [Concomitant]
     Active Substance: RIVAROXABAN
  4. MULTIVITAMIN [Concomitant]
     Active Substance: VITAMINS
  5. BABY ASPIRIN [Concomitant]
     Active Substance: ASPIRIN
  6. MIRALOX [Concomitant]
  7. LOSARTAN. [Concomitant]
     Active Substance: LOSARTAN
  8. TYLENOL [Concomitant]
     Active Substance: ACETAMINOPHEN
  9. ANORA INHALER [Concomitant]
  10. LASIX [Concomitant]
     Active Substance: FUROSEMIDE
  11. VITAMIN C [Concomitant]
     Active Substance: ASCORBIC ACID
  12. METOPROLOL TARTRATE TABS 50 MG GENERIC FOR LOPRESSOR TABS [Suspect]
     Active Substance: METOPROLOL TARTRATE
     Indication: HYPERTENSION
     Dosage: ?          QUANTITY:1 TABLET(S);?
     Route: 048
     Dates: start: 20181022, end: 20191007

REACTIONS (3)
  - Fatigue [None]
  - Hallucination, visual [None]
  - Feeling abnormal [None]

NARRATIVE: CASE EVENT DATE: 20190921
